FAERS Safety Report 8799110 (Version 1)
Quarter: 2012Q4

REPORT INFORMATION
  Report Type: 
  Country: US (occurrence: US)
  Receive Date: 20120920
  Receipt Date: 20120920
  Transmission Date: 20130627
  Serious: No
  Sender: FDA-Public Use
  Company Number: US-ASTRAZENECA-2011SE75128

PATIENT
  Sex: Female

DRUGS (6)
  1. LISINOPRIL [Suspect]
     Route: 048
  2. ATACAND HCT [Concomitant]
     Indication: BLOOD PRESSURE ABNORMAL
     Dosage: 32/25 MG, ONE TABLET ONCE A DAY
     Route: 048
  3. FLEXERIL [Concomitant]
     Indication: MUSCLE SPASMS
     Dosage: ONE TABLET, ONCE A DAY PRN (AS NEEDED)
     Route: 048
  4. CLONIDINE [Concomitant]
     Route: 048
  5. COUMADIN [Concomitant]
     Dosage: ONE TO TWO TABLETS ONCE A DAY
     Route: 048
  6. ATACAND [Concomitant]
     Route: 048

REACTIONS (1)
  - Oedema mouth [Unknown]
